FAERS Safety Report 8970389 (Version 1)
Quarter: 2012Q4

REPORT INFORMATION
  Report Type: 
  Country: US (occurrence: US)
  Receive Date: 20121218
  Receipt Date: 20121218
  Transmission Date: 20130627
  Serious: No
  Sender: FDA-Public Use
  Company Number: US-BRISTOL-MYERS SQUIBB COMPANY-17055724

PATIENT
  Age: 60 Year
  Sex: Male
  Weight: 112.47 kg

DRUGS (4)
  1. ABILIFY [Suspect]
     Indication: DEPRESSION
     Dosage: at night
  2. LISINOPRIL + HCTZ [Suspect]
     Indication: HYPERTENSION
     Dosage: 1 DF: 20/12.5 mg
  3. AMLODIPINE BESYLATE [Suspect]
     Indication: HYPERTENSION
  4. INSULIN [Concomitant]
     Indication: DIABETES MELLITUS

REACTIONS (2)
  - Dizziness [Unknown]
  - Panic attack [Unknown]
